FAERS Safety Report 4714148-5 (Version None)
Quarter: 2005Q3

REPORT INFORMATION
  Report Type: 
  Country: None (occurrence: None)
  Receive Date: 20050714
  Receipt Date: 20050708
  Transmission Date: 20060218
  Serious: Yes (Hospitalization)
  Sender: FDA-Public Use
  Company Number: CA-BRISTOL-MYERS SQUIBB COMPANY-13030770

PATIENT
  Age: 80 Year
  Sex: Female
  Weight: 63 kg

DRUGS (7)
  1. TEQUIN [Suspect]
     Indication: CHRONIC OBSTRUCTIVE PULMONARY DISEASE
     Route: 048
     Dates: start: 20050521, end: 20050501
  2. DIABETA [Concomitant]
  3. GLUCOPHAGE [Concomitant]
  4. AVANDIA [Concomitant]
  5. LIPITOR [Concomitant]
  6. AVAPRO [Concomitant]
  7. DIDROCAL [Concomitant]

REACTIONS (2)
  - COMA [None]
  - HYPOGLYCAEMIA [None]
